FAERS Safety Report 5772496-4 (Version None)
Quarter: 2008Q2

REPORT INFORMATION
  Report Type: 
  Country: None (occurrence: None)
  Receive Date: 20080601
  Receipt Date: 20080310
  Transmission Date: 20081010
  Serious: No
  Sender: FDA-Public Use
  Company Number: US200803000241

PATIENT
  Age: 60 Year
  Sex: Female
  Weight: 78.9 kg

DRUGS (5)
  1. BYETTA [Suspect]
     Indication: WEIGHT CONTROL
     Dosage: 5 UG, 2/D, SUBCUTANEOUS : 10 UG, 2/D, SUBCUTANEOUS
     Route: 058
     Dates: start: 20080122, end: 20080221
  2. DRUG USED IN DIABETES [Concomitant]
  3. ZYRTEC [Concomitant]
  4. ANTIHYPERTENSIVES [Concomitant]
  5. NASAL SPRAY (OXYMETAZOLE HYDROCHLORIDE) [Concomitant]

REACTIONS (4)
  - BLOOD GLUCOSE DECREASED [None]
  - BLOOD GLUCOSE INCREASED [None]
  - INCORRECT DOSE ADMINISTERED [None]
  - WEIGHT INCREASED [None]
